FAERS Safety Report 11922590 (Version 9)
Quarter: 2016Q2

REPORT INFORMATION
  Report Type: Report from Study
  Country: BE (occurrence: BE)
  Receive Date: 20160115
  Receipt Date: 20160415
  Transmission Date: 20160815
  Serious: Yes (Death, Hospitalization, Other)
  Sender: FDA-Public Use
  Company Number: BE-ABBVIE-13P-013-1132092-00

PATIENT
  Age: 86 Year
  Sex: Female

DRUGS (7)
  1. DUODOPA [Suspect]
     Active Substance: CARBIDOPA\LEVODOPA
     Dosage: AM=3ML; CD=2ML/HR DURING 16HRS; ED=1ML; ND=2ML/HR DURING 8HRS
     Route: 050
     Dates: start: 20160209
  2. DUODOPA [Suspect]
     Active Substance: CARBIDOPA\LEVODOPA
     Indication: PARKINSON^S DISEASE
     Dosage: AM DOSE= 5ML, CONTIN DOSE= 1.8ML/H DURING 16HRS, EXTRA DOSE= 1ML
     Route: 050
     Dates: start: 20090831, end: 20100111
  3. MORFINE [Concomitant]
     Active Substance: MORPHINE
     Indication: PRODUCT USED FOR UNKNOWN INDICATION
     Dates: start: 20160310
  4. DUODOPA [Suspect]
     Active Substance: CARBIDOPA\LEVODOPA
     Dosage: DOSAGE CONTINUOUSLY MONITORED AND ADJUSTED
     Route: 050
     Dates: start: 20100111, end: 20120711
  5. DUODOPA [Suspect]
     Active Substance: CARBIDOPA\LEVODOPA
     Dosage: AM DOSE=2ML,CONTIN DOSE=2.2ML/H DURING 16HRS,NIGHT DOSE=1ML/H DURING 8HRS,EXTRA DOSE=1ML
     Route: 050
     Dates: start: 20120711, end: 20131010
  6. DUODOPA [Suspect]
     Active Substance: CARBIDOPA\LEVODOPA
     Dosage: AM=2ML; CD=2ML/HR DURING 16HRS ; ED=1.5ML
     Route: 050
     Dates: start: 20160125, end: 20160209
  7. DUODOPA [Suspect]
     Active Substance: CARBIDOPA\LEVODOPA
     Dosage: AM 2ML, CONTIN 2.4ML/H IN 16HRS, PM 1ML/H IN 8HRS, ED 1ML
     Route: 050
     Dates: start: 20131010, end: 20160125

REACTIONS (28)
  - Gait disturbance [Recovering/Resolving]
  - PO2 decreased [Fatal]
  - Myalgia [Unknown]
  - Neoplasm malignant [Unknown]
  - Device alarm issue [Unknown]
  - Muscle spasms [Recovering/Resolving]
  - Drug ineffective [Unknown]
  - General physical health deterioration [Unknown]
  - Fall [Recovering/Resolving]
  - Stoma site erythema [Not Recovered/Not Resolved]
  - Pain [Unknown]
  - Dystonia [Unknown]
  - Mass [Unknown]
  - Cardiopulmonary failure [Fatal]
  - Excessive granulation tissue [Unknown]
  - Balance disorder [Unknown]
  - On and off phenomenon [Recovering/Resolving]
  - Hallucination [Not Recovered/Not Resolved]
  - Catheter site infection [Recovering/Resolving]
  - Mobility decreased [Not Recovered/Not Resolved]
  - Urinary tract infection [Unknown]
  - Movement disorder [Unknown]
  - Muscle rigidity [Not Recovered/Not Resolved]
  - Crying [Unknown]
  - Pain in extremity [Not Recovered/Not Resolved]
  - Hyperhidrosis [Recovering/Resolving]
  - Stoma site discharge [Not Recovered/Not Resolved]
  - Muscle spasms [Unknown]

NARRATIVE: CASE EVENT DATE: 20160310
